FAERS Safety Report 5501524-6 (Version None)
Quarter: 2007Q4

REPORT INFORMATION
  Report Type: 
  Country: None (occurrence: None)
  Receive Date: 20071030
  Receipt Date: 20071023
  Transmission Date: 20080405
  Serious: Yes (Hospitalization)
  Sender: FDA-Public Use
  Company Number: PHBS2007ES17671

PATIENT
  Age: 74 Year
  Sex: Male

DRUGS (8)
  1. CO-DIOVAN FORTE [Suspect]
     Dosage: UNK, QD
     Route: 048
     Dates: start: 20070101
  2. LIBRADIN [Suspect]
     Dosage: 10 MG, QD
     Route: 048
  3. CARDURA [Suspect]
     Indication: HYPERTENSION
     Dosage: 4 MG, QD
     Route: 048
     Dates: start: 20070710, end: 20070713
  4. OMEPRAZOLE [Concomitant]
     Dosage: UNK, QD
     Route: 048
  5. HEMOVAS [Concomitant]
     Dosage: 400 MG, QD
     Route: 048
  6. LIPLAT [Concomitant]
     Dosage: 10 MG, QD
     Route: 048
  7. PLAVIX [Concomitant]
     Dosage: 75 MG, QD
     Route: 048
  8. ADIRO [Concomitant]
     Dosage: 100 MG, QD
     Route: 048

REACTIONS (3)
  - DRUG INTERACTION [None]
  - TRANSIENT ISCHAEMIC ATTACK [None]
  - VENA CAVA THROMBOSIS [None]
